FAERS Safety Report 5536460-2 (Version None)
Quarter: 2007Q4

REPORT INFORMATION
  Report Type: 
  Country: None (occurrence: None)
  Receive Date: 20071206
  Receipt Date: 20071130
  Transmission Date: 20080405
  Serious: Yes (Life-Threatening, Disabling)
  Sender: FDA-Public Use
  Company Number: US-MERCK-0712USA00257

PATIENT
  Age: 68 Year
  Sex: Female

DRUGS (9)
  1. FOSAMAX [Suspect]
     Indication: OSTEOPOROSIS
     Route: 048
     Dates: start: 19990101
  2. FOSAMAX [Suspect]
     Route: 048
     Dates: end: 20070301
  3. LEVOTHYROXINE SODIUM [Concomitant]
     Route: 065
  4. ASPIRIN [Concomitant]
     Route: 065
  5. [THERAPY UNSPECIFIED] [Concomitant]
     Route: 065
  6. FLAXSEED [Concomitant]
     Route: 065
  7. LISINOPRIL [Concomitant]
     Route: 065
  8. PRILOSEC [Concomitant]
     Route: 065
  9. VITAMINS (UNSPECIFIED) [Concomitant]
     Route: 065

REACTIONS (6)
  - DRUG INEFFECTIVE [None]
  - EXOSTOSIS [None]
  - FISTULA [None]
  - GINGIVAL INFECTION [None]
  - OSTEOMYELITIS [None]
  - SPINAL COMPRESSION FRACTURE [None]
